FAERS Safety Report 8901567 (Version 1)
Quarter: 2012Q4

REPORT INFORMATION
  Report Type: Spontaneous
  Country: US (occurrence: None)
  Receive Date: 20121108
  Receipt Date: 20121108
  Transmission Date: 20130627
  Serious: No
  Sender: FDA-Public Use
  Company Number: None

PATIENT
  Age: 36 Year
  Sex: Female
  Weight: 64.41 kg

DRUGS (1)
  1. BUPROPION HYDROCHLORIDE XL [Suspect]
     Indication: DEPRESSION
     Dosage: QAM
     Route: 048

REACTIONS (2)
  - Tremor [None]
  - Feeling abnormal [None]
